FAERS Safety Report 12597730 (Version 2)
Quarter: 2016Q3

REPORT INFORMATION
  Report Type: Spontaneous
  Country: US (occurrence: US)
  Receive Date: 20160726
  Receipt Date: 20160803
  Transmission Date: 20161109
  Serious: Yes (Other)
  Sender: FDA-Public Use
  Company Number: US-BAXALTA-2016BLT005379

PATIENT
  Age: 64 Year
  Sex: Male

DRUGS (4)
  1. GAMMAGARD LIQUID [Suspect]
     Active Substance: HUMAN IMMUNOGLOBULIN G
     Indication: OFF LABEL USE
  2. GAMMAGARD LIQUID [Suspect]
     Active Substance: HUMAN IMMUNOGLOBULIN G
     Indication: DEMYELINATING POLYNEUROPATHY
     Dosage: 40 G, ONCE
     Route: 065
     Dates: start: 20160421, end: 20160421
  3. GAMUNEX-C [Suspect]
     Active Substance: HUMAN IMMUNOGLOBULIN G
     Indication: DEMYELINATING POLYNEUROPATHY
     Dosage: 40 G, FOR FIVE CONSECUTIVE DAYS
     Route: 042
     Dates: start: 20160404, end: 20160408
  4. GAMUNEX-C [Suspect]
     Active Substance: HUMAN IMMUNOGLOBULIN G
     Indication: LEWIS-SUMNER SYNDROME

REACTIONS (15)
  - Skin exfoliation [Recovering/Resolving]
  - Chills [Recovering/Resolving]
  - Hypersensitivity [Recovering/Resolving]
  - Rash [Recovering/Resolving]
  - Dehydration [Recovering/Resolving]
  - Swelling [Recovering/Resolving]
  - Weight increased [Recovering/Resolving]
  - Oedema peripheral [Recovering/Resolving]
  - Alopecia [Recovering/Resolving]
  - Skin fissures [Recovering/Resolving]
  - Blood glucose increased [Recovering/Resolving]
  - Discomfort [Recovering/Resolving]
  - Pruritus [Recovering/Resolving]
  - Temperature regulation disorder [Recovering/Resolving]
  - Mobility decreased [Recovering/Resolving]

NARRATIVE: CASE EVENT DATE: 2016
